FAERS Safety Report 9848452 (Version 1)
Quarter: 2014Q1

REPORT INFORMATION
  Report Type: Spontaneous
  Country: US (occurrence: None)
  Receive Date: 20140127
  Receipt Date: 20140127
  Transmission Date: 20141002
  Serious: Yes (Disabling)
  Sender: FDA-Public Use
  Company Number: None

PATIENT
  Age: 43 Year
  Sex: Female
  Weight: 57.61 kg

DRUGS (2)
  1. NIFEDIPINE [Suspect]
     Indication: NEURALGIA
     Route: 048
  2. NIFEDIPINE [Suspect]
     Indication: RAYNAUD^S PHENOMENON
     Route: 048

REACTIONS (5)
  - Drug ineffective [None]
  - Pain [None]
  - Medication residue present [None]
  - Product solubility abnormal [None]
  - Product physical issue [None]
